FAERS Safety Report 4465783-3 (Version None)
Quarter: 2004Q4

REPORT INFORMATION
  Report Type: 
  Country: None (occurrence: None)
  Receive Date: 20041005
  Receipt Date: 20040930
  Transmission Date: 20050328
  Serious: Yes (Death)
  Sender: FDA-Public Use
  Company Number: US-JNJFOC-20041000382

PATIENT
  Sex: Male

DRUGS (6)
  1. INFLIXIMAB [Suspect]
     Indication: RHEUMATOID ARTHRITIS
     Route: 042
  2. CELEBREX [Concomitant]
  3. PLAQUENIL [Concomitant]
  4. IMURAN [Concomitant]
  5. HYDROCHLOROTHIAZIDE [Concomitant]
  6. ENALAPRIL MALEATE [Concomitant]

REACTIONS (1)
  - SMALL CELL LUNG CANCER STAGE UNSPECIFIED [None]
